FAERS Safety Report 17218918 (Version 3)
Quarter: 2020Q1

REPORT INFORMATION
  Report Type: Spontaneous
  Country: US (occurrence: US)
  Receive Date: 20191231
  Receipt Date: 20200312
  Transmission Date: 20200409
  Serious: No
  Sender: FDA-Public Use
  Company Number: US-009507513-1912USA012125

PATIENT
  Sex: Female

DRUGS (3)
  1. SINEMET [Suspect]
     Active Substance: CARBIDOPA\LEVODOPA
     Indication: MUSCLE RIGIDITY
     Dosage: 100 PILLS QUANTITY (BLUE COLOURED ROUND PILLS)
     Route: 048
     Dates: start: 201606, end: 2018
  2. SINEMET [Suspect]
     Active Substance: CARBIDOPA\LEVODOPA
     Indication: MUSCLE RIGIDITY
     Dosage: UNK
     Route: 048
     Dates: start: 1979
  3. CARBIDOPA (+) LEVODOPA [Suspect]
     Active Substance: CARBIDOPA\LEVODOPA
     Indication: MUSCLE RIGIDITY
     Dosage: 25/250; 1 PILL 3 TIMES A DAY
     Route: 048
     Dates: start: 2019

REACTIONS (10)
  - Movement disorder [Not Recovered/Not Resolved]
  - Product availability issue [Unknown]
  - Drug ineffective [Not Recovered/Not Resolved]
  - Asthenia [Not Recovered/Not Resolved]
  - Muscle rigidity [Not Recovered/Not Resolved]
  - Headache [Not Recovered/Not Resolved]
  - Suspected counterfeit product [Unknown]
  - Joint stiffness [Not Recovered/Not Resolved]
  - Arthralgia [Not Recovered/Not Resolved]
  - Drug diversion [Unknown]

NARRATIVE: CASE EVENT DATE: 2018
